FAERS Safety Report 4327471-3 (Version None)
Quarter: 2004Q1

REPORT INFORMATION
  Report Type: 
  Country: None (occurrence: None)
  Receive Date: 20040325
  Receipt Date: 20040311
  Transmission Date: 20041129
  Serious: Yes (Hospitalization)
  Sender: FDA-Public Use
  Company Number: RB-581-2004

PATIENT
  Age: 22 Year
  Sex: Male

DRUGS (1)
  1. BUPRENORPHIEN HYDROCHLORIDE [Suspect]
     Indication: DRUG DEPENDENCE
     Dosage: IV
     Route: 042

REACTIONS (3)
  - BRONCHOPNEUMONIA [None]
  - DRUG DEPENDENCE [None]
  - INTENTIONAL MISUSE [None]
